FAERS Safety Report 20947683 (Version 1)
Quarter: 2022Q2

REPORT INFORMATION
  Report Type: Spontaneous
  Country: NL (occurrence: NL)
  Receive Date: 20220611
  Receipt Date: 20220611
  Transmission Date: 20220721
  Serious: Yes (Hospitalization)
  Sender: FDA-Public Use
  Company Number: None

PATIENT
  Age: 56 Year
  Sex: Male
  Weight: 101 kg

DRUGS (2)
  1. LISINOPRIL [Suspect]
     Active Substance: LISINOPRIL
     Indication: Hypertension
     Dosage: 1DF, THERAPY END DATE ASKU, LISINOPRIL TABLET 10MG / BRAND NAME NOT SPECIFIED
     Route: 065
     Dates: start: 2020
  2. GLICLAZIDE [Concomitant]
     Active Substance: GLICLAZIDE
     Dosage: GLLICLAZIDE TABLET MGA 80MG / BRAND NAME NOT SPECIFIED,THERAPY START DATE ASKU, THERAPY END DATE ASK
     Route: 065

REACTIONS (3)
  - Abdominal pain [Recovered/Resolved]
  - Prostatic pain [Recovered/Resolved]
  - Back pain [Recovered/Resolved]

NARRATIVE: CASE EVENT DATE: 20200101
